FAERS Safety Report 13969286 (Version 1)
Quarter: 2017Q3

REPORT INFORMATION
  Report Type: Spontaneous
  Country: US (occurrence: US)
  Receive Date: 20170914
  Receipt Date: 20170914
  Transmission Date: 20171128
  Serious: No
  Sender: FDA-Public Use
  Company Number: US-ASTELLAS-2017US013120

PATIENT
  Age: 87 Year
  Sex: Male

DRUGS (4)
  1. XTANDI [Suspect]
     Active Substance: ENZALUTAMIDE
     Route: 048
     Dates: start: 20170712
  2. XTANDI [Suspect]
     Active Substance: ENZALUTAMIDE
     Indication: NEOPLASM PROSTATE
     Dosage: 120 MG (40 MG X 3 CAPSULES), ONCE DAILY
     Route: 048
     Dates: start: 20170502, end: 20170518
  3. XTANDI [Suspect]
     Active Substance: ENZALUTAMIDE
     Indication: PROSTATE CANCER
     Route: 048
     Dates: start: 20170117
  4. XTANDI [Suspect]
     Active Substance: ENZALUTAMIDE
     Route: 048
     Dates: start: 20170526

REACTIONS (8)
  - Paraesthesia [Not Recovered/Not Resolved]
  - Decreased appetite [Unknown]
  - Feeling cold [Unknown]
  - Fatigue [Unknown]
  - Vision blurred [Recovering/Resolving]
  - Dysgeusia [Unknown]
  - Visual impairment [Not Recovered/Not Resolved]
  - Burning sensation [Not Recovered/Not Resolved]

NARRATIVE: CASE EVENT DATE: 20170117
